FAERS Safety Report 15553860 (Version 1)
Quarter: 2018Q4

REPORT INFORMATION
  Report Type: Report from Study
  Country: None (occurrence: US)
  Receive Date: 20181026
  Receipt Date: 20181026
  Transmission Date: 20190205
  Serious: Yes (Hospitalization)
  Sender: FDA-Public Use
  Company Number: US-ABBVIE-18K-163-2342265-00

PATIENT
  Sex: Male
  Weight: 79.9 kg

DRUGS (2)
  1. HUMIRA [Suspect]
     Active Substance: ADALIMUMAB
     Route: 058
     Dates: start: 201804
  2. HUMIRA [Suspect]
     Active Substance: ADALIMUMAB
     Indication: HIDRADENITIS
     Dosage: DAY 1
     Route: 058
     Dates: start: 201804, end: 201804

REACTIONS (4)
  - Anaemia [Unknown]
  - Peripheral swelling [Unknown]
  - Haemorrhage [Unknown]
  - Hidradenitis [Unknown]

NARRATIVE: CASE EVENT DATE: 2018
